FAERS Safety Report 8195468-1 (Version None)
Quarter: 2012Q1

REPORT INFORMATION
  Report Type: 
  Country: None (occurrence: None)
  Receive Date: 20120308
  Receipt Date: 20120303
  Transmission Date: 20120608
  Serious: Yes (Death)
  Sender: FDA-Public Use
  Company Number: PHHY2012FR018528

PATIENT
  Sex: Male

DRUGS (1)
  1. IMATINIB MESYLATE [Suspect]
     Indication: GIANT CELL TUMOUR OF TENDON SHEATH
     Dosage: 400 MG, DAILY

REACTIONS (2)
  - GIANT CELL TUMOUR OF TENDON SHEATH [None]
  - NO THERAPEUTIC RESPONSE [None]
